FAERS Safety Report 7295403-4 (Version None)
Quarter: 2011Q1

REPORT INFORMATION
  Report Type: 
  Country: None (occurrence: None)
  Receive Date: 20110211
  Receipt Date: 20110211
  Transmission Date: 20110831
  Serious: Yes (Other)
  Sender: FDA-Public Use
  Company Number: None

PATIENT
  Age: 76 Year
  Sex: Male
  Weight: 63.5036 kg

DRUGS (1)
  1. LEVAQUIN [Suspect]

REACTIONS (3)
  - DIVERTICULITIS [None]
  - GAIT DISTURBANCE [None]
  - PAIN IN EXTREMITY [None]
